FAERS Safety Report 14839615 (Version 1)
Quarter: 2018Q2

REPORT INFORMATION
  Report Type: Spontaneous
  Country: FR (occurrence: FR)
  Receive Date: 20180502
  Receipt Date: 20180502
  Transmission Date: 20180711
  Serious: Yes (Death, Other)
  Sender: FDA-Public Use
  Company Number: FR-BRISTOL-MYERS SQUIBB COMPANY-BMS-2018-040412

PATIENT
  Age: 30 Year
  Sex: Female
  Weight: 47.9 kg

DRUGS (1)
  1. OPDIVO [Suspect]
     Active Substance: NIVOLUMAB
     Indication: METASTATIC MALIGNANT MELANOMA
     Route: 042

REACTIONS (3)
  - Eosinophil count increased [Recovered/Resolved]
  - Death [Fatal]
  - Lymphopenia [Unknown]

NARRATIVE: CASE EVENT DATE: 20150126
